FAERS Safety Report 5624114-3 (Version None)
Quarter: 2008Q1

REPORT INFORMATION
  Report Type: 
  Country: None (occurrence: None)
  Receive Date: 20080213
  Receipt Date: 20080201
  Transmission Date: 20080703
  Serious: Yes (Hospitalization)
  Sender: FDA-Public Use
  Company Number: CA-JNJFOC-20080200596

PATIENT
  Age: 44 Year
  Sex: Male

DRUGS (2)
  1. REMICADE [Suspect]
     Dosage: IN 250 CC NORMAL SALINE, SECOND INFUSION
     Route: 042
  2. REMICADE [Suspect]
     Indication: CROHN'S DISEASE
     Dosage: IN 250 CC NORMAL SALINE, FIRST INFUSION
     Route: 042

REACTIONS (4)
  - PLEURAL EFFUSION [None]
  - SMALL INTESTINAL OBSTRUCTION [None]
  - TUBERCULOSIS GASTROINTESTINAL [None]
  - UPPER RESPIRATORY TRACT INFECTION [None]
